FAERS Safety Report 13970128 (Version 3)
Quarter: 2017Q4

REPORT INFORMATION
  Report Type: Spontaneous
  Country: DE (occurrence: DE)
  Receive Date: 20170914
  Receipt Date: 20171023
  Transmission Date: 20180321
  Serious: Yes (Death)
  Sender: FDA-Public Use
  Company Number: PHHY2017DE135363

PATIENT
  Sex: Female

DRUGS (7)
  1. AMIOGAMMA [Concomitant]
     Indication: ATRIAL FIBRILLATION
     Dosage: 1 DF, QD
     Route: 065
     Dates: start: 2012
  2. ENTRESTO [Suspect]
     Active Substance: SACUBITRIL\VALSARTAN
     Indication: CARDIAC FAILURE CHRONIC
     Dosage: 1 DF (49/51 MG), BID
     Route: 048
     Dates: start: 20161024, end: 20170409
  3. METOPROLOL. [Concomitant]
     Active Substance: METOPROLOL
     Indication: CARDIAC FAILURE
     Dosage: 1 DF, BID
     Route: 048
     Dates: start: 2012
  4. ENTRESTO [Suspect]
     Active Substance: SACUBITRIL\VALSARTAN
     Dosage: 1 DF (24/26 MG), BID
     Route: 048
     Dates: start: 20170410
  5. METOPROLOL. [Concomitant]
     Active Substance: METOPROLOL
     Indication: ATRIAL FIBRILLATION
  6. ENTRESTO [Suspect]
     Active Substance: SACUBITRIL\VALSARTAN
     Dosage: 1 DF (49/51 MG), BID
     Route: 048
     Dates: start: 201704
  7. MARCUMAR [Concomitant]
     Active Substance: PHENPROCOUMON
     Indication: ATRIAL FIBRILLATION
     Dosage: ACCORDING TO INR
     Route: 048

REACTIONS (10)
  - Oedema peripheral [Fatal]
  - Wheezing [Fatal]
  - Cough [Fatal]
  - Hypotension [Recovered/Resolved]
  - Speech disorder [Fatal]
  - Dysphagia [Fatal]
  - Musculoskeletal discomfort [Fatal]
  - Cardiac failure [Unknown]
  - Angioedema [Fatal]
  - Dyspnoea [Fatal]

NARRATIVE: CASE EVENT DATE: 20170410
